FAERS Safety Report 6597207-4 (Version None)
Quarter: 2010Q1

REPORT INFORMATION
  Report Type: 
  Country: None (occurrence: None)
  Receive Date: 20100223
  Receipt Date: 20100219
  Transmission Date: 20100710
  Serious: Yes (Death, Hospitalization)
  Sender: FDA-Public Use
  Company Number: PHHY2010MX00540

PATIENT
  Sex: Female

DRUGS (1)
  1. DIOVAN [Suspect]
     Indication: HYPERTENSION
     Dosage: 1 DF (160 MG), QD
     Route: 048
     Dates: start: 20060817, end: 20091011

REACTIONS (3)
  - CARDIAC FAILURE [None]
  - CARDIO-RESPIRATORY ARREST [None]
  - PULMONARY OEDEMA [None]
